FAERS Safety Report 7508629-9 (Version None)
Quarter: 2011Q2

REPORT INFORMATION
  Report Type: 
  Country: None (occurrence: None)
  Receive Date: 20110527
  Receipt Date: 20110330
  Transmission Date: 20111010
  Serious: No
  Sender: FDA-Public Use
  Company Number: A0921713A

PATIENT
  Age: 55 Year
  Sex: Female
  Weight: 77 kg

DRUGS (7)
  1. COUMADIN [Concomitant]
  2. FLOLAN [Suspect]
     Dosage: 20NGKM UNKNOWN
     Route: 065
     Dates: start: 20110126
  3. TRACLEER [Concomitant]
     Dosage: 125MG TWICE PER DAY
     Route: 065
  4. AMOXICILLIN [Suspect]
     Route: 065
  5. POTASSIUM CHLORIDE [Suspect]
  6. LASIX [Concomitant]
  7. OXYGEN [Concomitant]

REACTIONS (4)
  - SKIN DISCOLOURATION [None]
  - HYPERSENSITIVITY [None]
  - PAIN IN EXTREMITY [None]
  - RASH [None]
